FAERS Safety Report 26024732 (Version 2)
Quarter: 2025Q4

REPORT INFORMATION
  Report Type: Spontaneous
  Country: US (occurrence: US)
  Receive Date: 20251111
  Receipt Date: 20251128
  Transmission Date: 20260118
  Serious: Yes (Other)
  Sender: GLAXOSMITHKLINE
  Company Number: US-GSK-US2025144532

PATIENT
  Age: 63 Year
  Sex: Female

DRUGS (2)
  1. TRELEGY ELLIPTA [Suspect]
     Active Substance: FLUTICASONE FUROATE\UMECLIDINIUM BROMIDE\VILANTEROL TRIFENATATE
     Indication: Product used for unknown indication
     Dosage: UNK
  2. Several [Concomitant]
     Indication: Chronic obstructive pulmonary disease
     Dosage: UNK

REACTIONS (9)
  - Pneumonia [Unknown]
  - Heart rate irregular [Recovering/Resolving]
  - Bronchial secretion retention [Not Recovered/Not Resolved]
  - Oxygen saturation decreased [Unknown]
  - Rhinorrhoea [Unknown]
  - Illness [Unknown]
  - Pulmonary pain [Unknown]
  - Oropharyngeal pain [Unknown]
  - Breath sounds abnormal [Unknown]

NARRATIVE: CASE EVENT DATE: 20251031
